FAERS Safety Report 4528830-6 (Version None)
Quarter: 2004Q4

REPORT INFORMATION
  Report Type: 
  Country: None (occurrence: None)
  Receive Date: 20041216
  Receipt Date: 20041210
  Transmission Date: 20050328
  Serious: Yes (Hospitalization)
  Sender: FDA-Public Use
  Company Number: FR-GLAXOSMITHKLINE-B0360262A

PATIENT
  Age: 84 Year
  Sex: Female
  Weight: 51 kg

DRUGS (13)
  1. DEROXAT [Suspect]
     Indication: DEPRESSION
     Dosage: 20MG PER DAY
     Route: 048
     Dates: start: 20041108, end: 20041112
  2. PRACTAZIN [Suspect]
     Dosage: 1UNIT PER DAY
     Route: 048
     Dates: end: 20041114
  3. EFFEXOR [Suspect]
     Indication: DEPRESSION
     Dosage: 37.5MG PER DAY
     Route: 048
     Dates: start: 20041112, end: 20041114
  4. URBANYL [Suspect]
     Indication: DEPRESSION
     Dosage: 1UNIT TWICE PER DAY
     Route: 048
     Dates: start: 20041112, end: 20041114
  5. FOSAMAX [Concomitant]
     Dosage: 1UNIT WEEKLY
     Route: 048
     Dates: start: 20030424, end: 20041114
  6. SKENAN [Concomitant]
     Dosage: 20MG PER DAY
     Route: 048
     Dates: start: 20041023, end: 20041114
  7. GINKOR FORT [Concomitant]
     Dosage: 2UNIT PER DAY
     Route: 048
  8. NEXIUM [Concomitant]
     Dosage: 1UNIT PER DAY
     Route: 048
  9. FORLAX [Concomitant]
     Dosage: 1UNIT PER DAY
     Dates: end: 20041118
  10. SPAGULAX [Concomitant]
     Dosage: 2UNIT PER DAY
     Dates: end: 20041114
  11. FRAGMIN [Concomitant]
     Dosage: 1UNIT PER DAY
  12. SELOKEN [Concomitant]
     Dosage: 1UNIT PER DAY
  13. CACIT D3 [Concomitant]
     Dosage: 1UNIT PER DAY
     Dates: start: 20030424

REACTIONS (11)
  - BLOOD OSMOLARITY DECREASED [None]
  - CARDIOMEGALY [None]
  - CONFUSIONAL STATE [None]
  - DISORIENTATION [None]
  - DRUG INTERACTION [None]
  - GENERAL PHYSICAL HEALTH DETERIORATION [None]
  - HYPONATRAEMIA [None]
  - KETOSIS [None]
  - MALAISE [None]
  - SINUS BRADYCARDIA [None]
  - SOMNOLENCE [None]
